FAERS Safety Report 13404110 (Version 3)
Quarter: 2017Q2

REPORT INFORMATION
  Report Type: Spontaneous
  Country: PT (occurrence: PT)
  Receive Date: 20170405
  Receipt Date: 20170428
  Transmission Date: 20170830
  Serious: Yes (Hospitalization)
  Sender: FDA-Public Use
  Company Number: PT-ROCHE-1914219

PATIENT
  Age: 54 Year
  Sex: Female
  Weight: 71 kg

DRUGS (7)
  1. VALDISPERT [Concomitant]
     Active Substance: HERBALS
     Route: 048
  2. CYCLOPHOSPHAMID [Concomitant]
     Active Substance: CYCLOPHOSPHAMIDE
  3. EPIRUBICIN [Concomitant]
     Active Substance: EPIRUBICIN
  4. PERJETA [Suspect]
     Active Substance: PERTUZUMAB
     Indication: HER-2 POSITIVE BREAST CANCER
     Dosage: MOST RECENT DOSE RECEIVED ON 08MAR/2017.
     Route: 042
     Dates: start: 20140124
  5. HERCEPTIN [Suspect]
     Active Substance: TRASTUZUMAB
     Indication: HER-2 POSITIVE BREAST CANCER
     Dosage: MOST RECENT DOSE RECEIVED ON 08/MAR/2017
     Route: 042
     Dates: start: 20170125
  6. DOCETAXEL. [Suspect]
     Active Substance: DOCETAXEL
     Indication: HER-2 POSITIVE BREAST CANCER
     Dosage: REPORTED AS DOCETAXEL AUROVITAS?MOST RECENT DOSE: 08/MAR/2017.
     Route: 042
     Dates: start: 20170125
  7. 5-FLUOROURACIL [Concomitant]
     Active Substance: FLUOROURACIL

REACTIONS (13)
  - C-reactive protein increased [Recovering/Resolving]
  - Neutropenia [Recovering/Resolving]
  - Hypoxia [Recovering/Resolving]
  - Septic shock [Recovering/Resolving]
  - Respiratory tract infection [Unknown]
  - Blood phosphorus decreased [Recovering/Resolving]
  - Anaemia [Recovering/Resolving]
  - Tachycardia [Recovering/Resolving]
  - Dyspnoea [Recovering/Resolving]
  - Productive cough [Recovering/Resolving]
  - Hypocapnia [Recovering/Resolving]
  - Pneumonia [Recovering/Resolving]
  - Blood albumin decreased [Recovering/Resolving]

NARRATIVE: CASE EVENT DATE: 20170316
